FAERS Safety Report 7519634-0 (Version None)
Quarter: 2011Q2

REPORT INFORMATION
  Report Type: 
  Country: None (occurrence: None)
  Receive Date: 20110602
  Receipt Date: 20110524
  Transmission Date: 20111010
  Serious: Yes (Death, Hospitalization)
  Sender: FDA-Public Use
  Company Number: A0929755A

PATIENT
  Sex: Female
  Weight: 72 kg

DRUGS (4)
  1. GLIMEPIRIDE [Concomitant]
     Dosage: .5TAB PER DAY
     Route: 065
     Dates: start: 20100301, end: 20110512
  2. TYKERB [Suspect]
     Indication: BREAST CANCER
     Dosage: 1250MG PER DAY
     Route: 065
     Dates: start: 20090101, end: 20110512
  3. ZOMETA [Concomitant]
     Indication: CHEMOTHERAPY
     Route: 065
     Dates: start: 20070101, end: 20110502
  4. METFORMIN HCL [Concomitant]
     Dosage: 1TAB TWICE PER DAY
     Route: 065
     Dates: start: 20100301, end: 20110512

REACTIONS (3)
  - BREAST CANCER [None]
  - MULTI-ORGAN FAILURE [None]
  - URINARY TRACT INFECTION [None]
